FAERS Safety Report 8439132-X (Version None)
Quarter: 2012Q2

REPORT INFORMATION
  Report Type: 
  Country: None (occurrence: None)
  Receive Date: 20120615
  Receipt Date: 20120611
  Transmission Date: 20120825
  Serious: Yes (Death)
  Sender: FDA-Public Use
  Company Number: US-PFIZER INC-2012141321

PATIENT
  Sex: Male

DRUGS (1)
  1. VFEND [Suspect]
     Indication: PROPHYLAXIS
     Dosage: 200 MG, 2X/DAY

REACTIONS (2)
  - LEUKAEMIA [None]
  - DISEASE PROGRESSION [None]
